FAERS Safety Report 15961768 (Version 1)
Quarter: 2019Q1

REPORT INFORMATION
  Report Type: Spontaneous
  Country: US (occurrence: US)
  Receive Date: 20190123
  Receipt Date: 20190123
  Transmission Date: 20190417
  Serious: Yes (Death)
  Sender: FDA-Public Use
  Company Number: None

PATIENT
  Age: 74 Year
  Sex: Male

DRUGS (1)
  1. REVLIMID [Suspect]
     Active Substance: LENALIDOMIDE
     Indication: PLASMA CELL MYELOMA
     Route: 048
     Dates: start: 20181218, end: 20190106

REACTIONS (6)
  - Pulmonary embolism [None]
  - Cellulitis [None]
  - Thrombophlebitis [None]
  - Pain [None]
  - Deep vein thrombosis [None]
  - Sepsis [None]

NARRATIVE: CASE EVENT DATE: 20190106
